FAERS Safety Report 10101497 (Version 1)
Quarter: 2014Q2

REPORT INFORMATION
  Report Type: Spontaneous
  Country: US (occurrence: US)
  Receive Date: 20140424
  Receipt Date: 20140424
  Transmission Date: 20141212
  Serious: No
  Sender: FDA-Public Use
  Company Number: US-JNJFOC-20140409774

PATIENT
  Age: 60 Year
  Sex: Male
  Weight: 86.18 kg

DRUGS (3)
  1. GENERIC FENTANYL TRANSDERMAL SYSTEM [Suspect]
     Indication: BACK PAIN
     Route: 061
     Dates: start: 20140404
  2. DURAGESIC [Suspect]
     Indication: BACK PAIN
     Route: 062
     Dates: start: 20140404
  3. LUNESTA [Concomitant]
     Indication: SLEEP DISORDER
     Dosage: 3 (UNIT UNSPECIFIED)/ONCE EVERY NIGHT
     Route: 048
     Dates: start: 2005

REACTIONS (3)
  - Wrong technique in drug usage process [Unknown]
  - Drug effect decreased [Not Recovered/Not Resolved]
  - Product quality issue [Unknown]
